FAERS Safety Report 8242902-4 (Version None)
Quarter: 2012Q1

REPORT INFORMATION
  Report Type: 
  Country: None (occurrence: None)
  Receive Date: 20120329
  Receipt Date: 20120320
  Transmission Date: 20120608
  Serious: Yes (Other)
  Sender: FDA-Public Use
  Company Number: CN-JNJFOC-20120310712

PATIENT

DRUGS (4)
  1. PROMETHAZINE [Concomitant]
     Route: 065
  2. REMICADE [Suspect]
     Indication: CROHN'S DISEASE
     Route: 042
  3. DEXAMETHASONE [Concomitant]
     Route: 042
  4. REMICADE [Suspect]
     Dosage: 100 MG AS 200 MG VD
     Route: 042

REACTIONS (4)
  - INFUSION RELATED REACTION [None]
  - URTICARIA [None]
  - CHEST PAIN [None]
  - TACHYPNOEA [None]
